FAERS Safety Report 14492220 (Version 7)
Quarter: 2018Q2

REPORT INFORMATION
  Report Type: Spontaneous
  Country: IR (occurrence: IR)
  Receive Date: 20180206
  Receipt Date: 20180523
  Transmission Date: 20180711
  Serious: Yes (Death, Hospitalization, Other)
  Sender: FDA-Public Use
  Company Number: IR-PFIZER INC-2018047030

PATIENT
  Age: 25 Year
  Sex: Male

DRUGS (1)
  1. AMLODIPINE BESILATE [Suspect]
     Active Substance: AMLODIPINE BESYLATE
     Dosage: 450 MG, UNK (90 TABLETS-5 MG EACH)
     Route: 048

REACTIONS (6)
  - Completed suicide [Fatal]
  - Hypercalcaemia [Fatal]
  - Shock [Fatal]
  - Overdose [Fatal]
  - Toxicity to various agents [Fatal]
  - Poisoning deliberate [Fatal]
